FAERS Safety Report 23021307 (Version 1)
Quarter: 2023Q4

REPORT INFORMATION
  Report Type: Spontaneous
  Country: CN (occurrence: CN)
  Receive Date: 20231003
  Receipt Date: 20231003
  Transmission Date: 20240109
  Serious: Yes (Hospitalization)
  Sender: FDA-Public Use
  Company Number: CN-Merck Healthcare KGaA-2023477572

PATIENT
  Age: 70 Year
  Sex: Female
  Weight: 42 kg

DRUGS (4)
  1. GLUCOPHAGE [Suspect]
     Active Substance: METFORMIN HYDROCHLORIDE
     Indication: Type 2 diabetes mellitus
     Route: 048
     Dates: start: 20230828, end: 20230911
  2. GLIPIZIDE [Suspect]
     Active Substance: GLIPIZIDE
     Indication: Type 2 diabetes mellitus
     Route: 048
     Dates: start: 20230828, end: 20230911
  3. INSULIN HUMAN\INSULIN SUSP ISOPHANE RECOMBINANT HUMAN [Suspect]
     Active Substance: INSULIN HUMAN
     Indication: Type 2 diabetes mellitus
     Dosage: 16 AND 14 UNITS RESPECTIVELY
     Route: 058
     Dates: start: 20230828, end: 20230911
  4. INSULIN HUMAN\INSULIN SUSP ISOPHANE RECOMBINANT HUMAN [Suspect]
     Active Substance: INSULIN HUMAN
     Route: 058
     Dates: start: 20230828, end: 20230911

REACTIONS (1)
  - Hypoglycaemic coma [Recovering/Resolving]

NARRATIVE: CASE EVENT DATE: 20230911
